FAERS Safety Report 5360330-6 (Version None)
Quarter: 2007Q2

REPORT INFORMATION
  Report Type: 
  Country: None (occurrence: None)
  Receive Date: 20070618
  Receipt Date: 20070604
  Transmission Date: 20071010
  Serious: Yes (Hospitalization)
  Sender: FDA-Public Use
  Company Number: JP-AMGEN-US227675

PATIENT
  Sex: Male

DRUGS (2)
  1. KINERET [Suspect]
     Indication: PRE-EXISTING DISEASE
     Route: 058
     Dates: start: 20060810
  2. IBUPROFEN [Concomitant]
     Route: 065

REACTIONS (4)
  - CHRONIC INFANTILE NEUROLOGICAL CUTANEOUS AND ARTICULAR SYNDROME [None]
  - HEADACHE [None]
  - INFECTION [None]
  - MALAISE [None]
